FAERS Safety Report 16542890 (Version 4)
Quarter: 2020Q3

REPORT INFORMATION
  Report Type: Report from Study
  Country: IL (occurrence: IL)
  Receive Date: 20190709
  Receipt Date: 20190827
  Transmission Date: 20201105
  Serious: Yes (Hospitalization)
  Sender: FDA-Public Use
  Company Number: IL-ROCHE-2306998

PATIENT
  Age: 34 Year
  Sex: Female
  Weight: 80.8 kg

DRUGS (3)
  1. ATEZOLIZUMAB. [Suspect]
     Active Substance: ATEZOLIZUMAB
     Indication: BREAST CANCER
     Dosage: DATE OF MOST RECENT DOSE OF ATEZOLIZUMAB PRIOR TO SAE ONSET: 07/APR/2019
     Route: 042
     Dates: start: 20190407
  2. IPATASERTIB. [Suspect]
     Active Substance: IPATASERTIB
     Indication: BREAST CANCER
     Dosage: DATE OF MOST RECENT DOSE OF IPATASERTIB OF 400 MG PRIOR TO SAE ONSET:07/APR/2019
     Route: 048
     Dates: start: 20190407
  3. FULVESTRANT. [Suspect]
     Active Substance: FULVESTRANT
     Indication: BREAST CANCER
     Dosage: ON DAYS 1 AND 15 OF CYCLE 1 AND THEREAFTER ON DAY 1 OF EACH 28?DAY CYCLE.?DATE OF MOST RECENT DOSE O
     Route: 030
     Dates: start: 20190407

REACTIONS (1)
  - Epstein-Barr virus infection [Recovered/Resolved]

NARRATIVE: CASE EVENT DATE: 20190417
